FAERS Safety Report 7629279-X (Version None)
Quarter: 2011Q3

REPORT INFORMATION
  Report Type: 
  Country: None (occurrence: None)
  Receive Date: 20110715
  Receipt Date: 20110701
  Transmission Date: 20111222
  Serious: Yes (Hospitalization)
  Sender: FDA-Public Use
  Company Number: 2011MA006941

PATIENT
  Age: 6 Month
  Sex: Female

DRUGS (1)
  1. PROPRANOLOL HCL [Suspect]
     Indication: HAEMANGIOMA
     Dosage: 2 MG/KG, OD

REACTIONS (10)
  - HYPOGLYCAEMIC SEIZURE [None]
  - APATHY [None]
  - LETHARGY [None]
  - SOMNOLENCE [None]
  - VOMITING [None]
  - DRUG ADMINISTRATION ERROR [None]
  - MOVEMENT DISORDER [None]
  - HYPERHIDROSIS [None]
  - BLOOD PRESSURE DECREASED [None]
  - HYPOPHAGIA [None]
